FAERS Safety Report 5457022-1 (Version None)
Quarter: 2007Q3

REPORT INFORMATION
  Report Type: 
  Country: None (occurrence: None)
  Receive Date: 20070918
  Receipt Date: 20070228
  Transmission Date: 20080115
  Serious: Yes (Other)
  Sender: FDA-Public Use
  Company Number: US-ASTRAZENECA-2006UW27651

PATIENT
  Sex: Male
  Weight: 110 kg

DRUGS (2)
  1. SEROQUEL [Suspect]
     Dosage: 100 MG - 200 MG
     Route: 048
     Dates: start: 20050101, end: 20060101
  2. MIRTAZAPINE [Concomitant]
     Dates: start: 20060210

REACTIONS (4)
  - CHEST PAIN [None]
  - DIABETES MELLITUS [None]
  - DIABETIC KETOACIDOSIS [None]
  - TARDIVE DYSKINESIA [None]
